FAERS Safety Report 9226487 (Version 1)
Quarter: 2013Q2

REPORT INFORMATION
  Report Type: Spontaneous
  Country: US (occurrence: US)
  Receive Date: 20130412
  Receipt Date: 20130412
  Transmission Date: 20140414
  Serious: Yes (Other)
  Sender: FDA-Public Use
  Company Number: US-BRISTOL-MYERS SQUIBB COMPANY-18766220

PATIENT
  Age: 60 Year
  Sex: Female
  Weight: 115.64 kg

DRUGS (9)
  1. BYDUREON [Suspect]
     Dosage: NO OF DOSES:3,LAST DOSE ON 29MAR13
     Dates: end: 20130329
  2. ALBUTEROL INHALER [Concomitant]
  3. VALIUM [Concomitant]
  4. XANAX [Concomitant]
     Dosage: AT BED TIME.
  5. GLIMEPIRIDE [Concomitant]
  6. LORTAB [Concomitant]
     Indication: BACK PAIN
     Dosage: 1DF:10/500 UNIT NOS
  7. CLONIDINE [Concomitant]
  8. OLMESARTAN MEDOXOMIL + HCTZ [Concomitant]
     Indication: HYPERTENSION
  9. AMLODIPINE [Concomitant]
     Indication: HYPERTENSION

REACTIONS (8)
  - Hypertension [Unknown]
  - Headache [Unknown]
  - Vitreous floaters [Unknown]
  - Diarrhoea [Unknown]
  - Abdominal pain [Not Recovered/Not Resolved]
  - Blood glucose decreased [Unknown]
  - Fatigue [Unknown]
  - Heart rate irregular [Unknown]
